FAERS Safety Report 21854910 (Version 2)
Quarter: 2023Q2

REPORT INFORMATION
  Report Type: Report from Study
  Country: US (occurrence: US)
  Receive Date: 20230112
  Receipt Date: 20230410
  Transmission Date: 20230721
  Serious: No
  Sender: FDA-Public Use
  Company Number: US-ABBVIE-4265828

PATIENT
  Sex: Male

DRUGS (1)
  1. IMBRUVICA [Suspect]
     Active Substance: IBRUTINIB
     Indication: Chronic lymphocytic leukaemia
     Route: 048
     Dates: start: 20221126

REACTIONS (11)
  - Drug ineffective [Unknown]
  - Hypoaesthesia oral [Unknown]
  - Vision blurred [Unknown]
  - Fatigue [Unknown]
  - White blood cell count abnormal [Unknown]
  - Head discomfort [Unknown]
  - Muscular weakness [Unknown]
  - Rash macular [Unknown]
  - Somnolence [Unknown]
  - Anxiety [Unknown]
  - Dizziness [Recovered/Resolved]
